FAERS Safety Report 9993378 (Version 1)
Quarter: 2014Q1

REPORT INFORMATION
  Report Type: Spontaneous
  Country: US (occurrence: US)
  Receive Date: 20140310
  Receipt Date: 20140310
  Transmission Date: 20141002
  Serious: Yes (Hospitalization)
  Sender: FDA-Public Use
  Company Number: PHHY2012US130270

PATIENT
  Age: 78 Year
  Sex: Female

DRUGS (13)
  1. BACLOFEN [Suspect]
     Indication: TETANUS
     Dosage: 20 MG, TID
  2. BACLOFEN [Suspect]
     Indication: MUSCLE SPASMS
     Dosage: 50 MG, TID
  3. BACLOFEN [Suspect]
     Dosage: 70 MG, TID
  4. BACLOFEN [Suspect]
     Dosage: 80 MG, TID
  5. BACLOFEN INTRATHECAL [Suspect]
     Dosage: 10 UG/HR
     Route: 037
  6. BACLOFEN INTRATHECAL [Suspect]
     Dosage: 1152 UG/24HR
     Route: 037
  7. DIAZEPAM [Suspect]
     Dosage: 5 MG, BID
  8. MIDAZOLAM [Suspect]
     Indication: MUSCLE SPASMS
  9. TETANUS IMMUNE GLOBULIN (HUMAN) [Suspect]
     Indication: TETANUS
  10. KLONOPIN [Suspect]
     Indication: MUSCLE SPASMS
     Dosage: 1 MG, TID
  11. KLONOPIN [Suspect]
     Dosage: 2 MG, TID
  12. DIPHTHERIA AND TETANUS TOXOIDS AND PERTUSSIS VACCINE [Suspect]
  13. METRONIDAZOLE [Concomitant]
     Indication: TETANUS
     Dosage: 500 MG, Q6H

REACTIONS (19)
  - Meningitis bacterial [Recovering/Resolving]
  - Coma [Recovering/Resolving]
  - Confusional state [Recovering/Resolving]
  - Electroencephalogram abnormal [Recovering/Resolving]
  - Encephalopathy [Recovering/Resolving]
  - Hypertension [Recovering/Resolving]
  - Hypotension [Recovering/Resolving]
  - Trismus [Recovering/Resolving]
  - Muscle spasms [Recovering/Resolving]
  - Pain [Recovering/Resolving]
  - Atrial fibrillation [Recovering/Resolving]
  - Respiratory disorder [Recovering/Resolving]
  - Somnolence [Recovering/Resolving]
  - Blepharospasm [Recovering/Resolving]
  - Tachycardia [Recovering/Resolving]
  - Mental status changes [Recovering/Resolving]
  - Autonomic nervous system imbalance [Recovering/Resolving]
  - Grimacing [Recovering/Resolving]
  - Neurological decompensation [Recovering/Resolving]
